FAERS Safety Report 8058880-7 (Version None)
Quarter: 2012Q1

REPORT INFORMATION
  Report Type: 
  Country: None (occurrence: None)
  Receive Date: 20120120
  Receipt Date: 20111102
  Transmission Date: 20120608
  Serious: Yes (Disabling)
  Sender: FDA-Public Use
  Company Number: US-BRISTOL-MYERS SQUIBB COMPANY-16180705

PATIENT
  Age: 56 Year
  Sex: Male
  Weight: 82 kg

DRUGS (8)
  1. OMEPRAZOLE [Concomitant]
  2. LISINOPRIL [Concomitant]
  3. YERVOY [Suspect]
     Indication: MALIGNANT MELANOMA
     Dosage: NO OF DOSE:4 4TH DOSE:20SEP11 TOTAL DOSE-246MG
     Route: 042
     Dates: start: 20110718, end: 20110920
  4. FUROSEMIDE [Concomitant]
  5. LORAZEPAM [Concomitant]
  6. PERCOCET [Concomitant]
  7. CITALOPRAM [Concomitant]
  8. NORTRIPTYLINE HCL [Concomitant]

REACTIONS (3)
  - DIARRHOEA [None]
  - PRURITUS [None]
  - DRY EYE [None]
